FAERS Safety Report 7767931-6 (Version None)
Quarter: 2011Q3

REPORT INFORMATION
  Report Type: 
  Country: None (occurrence: None)
  Receive Date: 20110922
  Receipt Date: 20110419
  Transmission Date: 20111222
  Serious: No
  Sender: FDA-Public Use
  Company Number: US-ASTRAZENECA-2011SE22488

PATIENT
  Age: 48 Year
  Sex: Female
  Weight: 94.3 kg

DRUGS (9)
  1. LIPITOR [Concomitant]
     Indication: HYPERCHOLESTEROLAEMIA
     Route: 048
  2. METOPROLOL TARTRATE [Concomitant]
     Indication: HYPERTENSION
     Route: 048
  3. LORAZEPAM [Concomitant]
     Indication: ANXIETY
     Route: 048
  4. PROZAC [Concomitant]
     Indication: DEPRESSION
     Route: 048
  5. LISINOPRIL [Concomitant]
     Indication: HYPERTENSION
     Route: 048
  6. LEVOTHYROXINE SODIUM [Concomitant]
     Indication: THYROID DISORDER
     Route: 048
  7. SEROQUEL XR [Suspect]
     Indication: SUICIDE ATTEMPT
     Route: 048
     Dates: start: 20100201, end: 20110413
  8. NITROGLYCERIN [Concomitant]
     Indication: HYPERTENSION
     Route: 048
  9. NEXIUM [Concomitant]
     Indication: GASTROOESOPHAGEAL REFLUX DISEASE
     Route: 048

REACTIONS (5)
  - PARAESTHESIA [None]
  - TACHYPHRENIA [None]
  - DRUG DOSE OMISSION [None]
  - WRONG DRUG ADMINISTERED [None]
  - INSOMNIA [None]
